FAERS Safety Report 14021894 (Version 3)
Quarter: 2018Q1

REPORT INFORMATION
  Report Type: Report from Study
  Country: US (occurrence: US)
  Receive Date: 20170928
  Receipt Date: 20180223
  Transmission Date: 20180508
  Serious: Yes (Other)
  Sender: FDA-Public Use
  Company Number: PHEH2017US031269

PATIENT
  Sex: Female

DRUGS (1)
  1. COSENTYX [Suspect]
     Active Substance: SECUKINUMAB
     Indication: PSORIASIS
     Dosage: 300 MG, QMO
     Route: 058

REACTIONS (7)
  - Ear infection fungal [Unknown]
  - Candida infection [Recovered/Resolved]
  - Candida infection [Not Recovered/Not Resolved]
  - Drug ineffective [Unknown]
  - Throat irritation [Unknown]
  - Psoriasis [Not Recovered/Not Resolved]
  - Excessive cerumen production [Unknown]
